FAERS Safety Report 9088823 (Version 1)
Quarter: 2013Q1

REPORT INFORMATION
  Report Type: Spontaneous
  Country: US (occurrence: US)
  Receive Date: 20130201
  Receipt Date: 20130201
  Transmission Date: 20140127
  Serious: Yes (Other)
  Sender: FDA-Public Use
  Company Number: CHPA2013US001743

PATIENT
  Age: 60 Year
  Sex: Female

DRUGS (3)
  1. PRIVATE LABEL [Suspect]
     Indication: SMOKING CESSATION THERAPY
     Dosage: 14 MG, QD
     Route: 062
     Dates: start: 2011
  2. PRIVATE LABEL [Suspect]
     Dosage: 21 MG, QD
     Route: 062
     Dates: start: 2011, end: 2011
  3. OXYGEN [Concomitant]

REACTIONS (5)
  - Crying [Recovered/Resolved]
  - Condition aggravated [Recovered/Resolved]
  - Depression [Recovered/Resolved]
  - Tremor [Recovered/Resolved]
  - Anxiety [Recovered/Resolved]
